FAERS Safety Report 24995547 (Version 1)
Quarter: 2025Q1

REPORT INFORMATION
  Report Type: Report from Study
  Country: CN (occurrence: CN)
  Receive Date: 20250221
  Receipt Date: 20250221
  Transmission Date: 20250409
  Serious: Yes (Other)
  Sender: PFIZER
  Company Number: CN-TAKEDA-2022TUS086476

PATIENT
  Age: 31 Year
  Sex: Female
  Weight: 71 kg

DRUGS (10)
  1. ADCETRIS [Suspect]
     Active Substance: BRENTUXIMAB VEDOTIN
     Indication: Hodgkin^s disease
     Dosage: 84 MILLIGRAM, Q3WEEKS
     Route: 041
     Dates: start: 20221102
  2. ADCETRIS [Suspect]
     Active Substance: BRENTUXIMAB VEDOTIN
     Indication: Tuberous sclerosis complex
     Route: 041
     Dates: start: 20221116
  3. ADCETRIS [Suspect]
     Active Substance: BRENTUXIMAB VEDOTIN
     Indication: Hodgkin^s disease nodular sclerosis
  4. EPIRUBICIN HYDROCHLORIDE [Suspect]
     Active Substance: EPIRUBICIN HYDROCHLORIDE
     Indication: Lymphoma
     Dosage: 60 MILLIGRAM, QD
     Route: 041
     Dates: start: 20221102, end: 20221102
  5. VINDESINE SULFATE [Suspect]
     Active Substance: VINDESINE SULFATE
     Indication: Lymphoma
     Dosage: 4 MILLIGRAM, QD
     Route: 041
     Dates: start: 20221102, end: 20221102
  6. DACARBAZINE [Suspect]
     Active Substance: DACARBAZINE
     Indication: Lymphoma
     Dosage: 723 MILLIGRAM, QD
     Route: 041
     Dates: start: 20221102, end: 20221102
  7. CEFACLOR [Concomitant]
     Active Substance: CEFACLOR
     Indication: Infection prophylaxis
     Dosage: 375 MILLIGRAM, BID (PHARMACEUTICAL FORM:SUSPENSION)
     Route: 048
     Dates: start: 20221103
  8. ACYCLOVIR [Concomitant]
     Active Substance: ACYCLOVIR
     Indication: Antiviral treatment
     Dosage: 0.4 GRAM, BID
     Route: 048
     Dates: start: 20221103
  9. LEUCOGEN [Concomitant]
     Active Substance: LEUCOGEN
     Indication: White blood cell count increased
     Dosage: 20 MILLIGRAM, TID
     Route: 048
     Dates: start: 20221103
  10. SULFAMETHOXAZOLE [Concomitant]
     Active Substance: SULFAMETHOXAZOLE
     Indication: Antifungal prophylaxis
     Dosage: 0.48 GRAM, QD
     Route: 048
     Dates: start: 20221103

REACTIONS (7)
  - Liver injury [Recovered/Resolved]
  - White blood cell count decreased [Unknown]
  - Gamma-glutamyltransferase increased [Recovered/Resolved]
  - Bile acids increased [Not Recovered/Not Resolved]
  - Alanine aminotransferase increased [Recovered/Resolved]
  - Aspartate aminotransferase increased [Recovered/Resolved]
  - Off label use [Recovered/Resolved]

NARRATIVE: CASE EVENT DATE: 20221102
